FAERS Safety Report 6412128-5 (Version None)
Quarter: 2009Q4

REPORT INFORMATION
  Report Type: 
  Country: None (occurrence: None)
  Receive Date: 20091020
  Receipt Date: 20091007
  Transmission Date: 20100525
  Serious: Yes (Hospitalization)
  Sender: FDA-Public Use
  Company Number: 2009AC000147

PATIENT
  Age: 61 Year
  Sex: Female

DRUGS (70)
  1. DIGOXIN [Suspect]
     Dosage: 0.25 MG; QD; PO
     Route: 048
     Dates: end: 20080501
  2. CELEXA [Concomitant]
  3. COMBIVENT [Concomitant]
  4. GLIPIZIDE [Concomitant]
  5. NEXIUM [Concomitant]
  6. EFFEXOR [Concomitant]
  7. FUROSEMIDE [Concomitant]
  8. GLUCOPHAGE [Concomitant]
  9. NOVOLIN [Concomitant]
  10. NITROGLYCERIN [Concomitant]
  11. TOPROL-XL [Concomitant]
  12. PLAVIX [Concomitant]
  13. ASPIRIN [Concomitant]
  14. CARDIZEM [Concomitant]
  15. ZOCOR [Concomitant]
  16. VITAMIN E [Concomitant]
  17. LORAZEPAM [Concomitant]
  18. DILAUDID [Concomitant]
  19. CLOPIDOGREL [Concomitant]
  20. DILTIAZEM [Concomitant]
  21. LIPITOR [Concomitant]
  22. ACTOS [Concomitant]
  23. METFORMIN HCL [Concomitant]
  24. FENTANYL TRANSDERMAL SYSTEM [Concomitant]
  25. MULTI-VITAMIN [Concomitant]
  26. HYDROCODONE BITARTRATE AND ACETAMINOPHEN [Concomitant]
  27. DIAZEPAM [Concomitant]
  28. CEFUROXIME [Concomitant]
  29. OXYCODONE HCL AND ACETAMINOPHEN [Concomitant]
  30. WARFARIN SODIUM [Concomitant]
  31. CANASA [Concomitant]
  32. NEXIUM [Concomitant]
  33. METOPROLOL TARTRATE [Concomitant]
  34. NITROGLYCERIN [Concomitant]
  35. MEPERITAB [Concomitant]
  36. NITROFURANTOIN [Concomitant]
  37. TEMAZEPAM [Concomitant]
  38. ACETAMINOPHEN W/ CODEINE TAB [Concomitant]
  39. HYDROMORPHONE HCL [Concomitant]
  40. PROPOXYPHENE-N [Concomitant]
  41. ALPRAZOLAM [Concomitant]
  42. NOVOLIN [Concomitant]
  43. FLUCONAZOLE [Concomitant]
  44. LEVAQUIN [Concomitant]
  45. VIGAMOX [Concomitant]
  46. LANTUS [Concomitant]
  47. CARTIA XT [Concomitant]
  48. KENALOG [Concomitant]
  49. TAZTIA [Concomitant]
  50. CELEXA [Concomitant]
  51. CITALOPRAM HYDROBROMIDE [Concomitant]
  52. GLUCOTROL [Concomitant]
  53. CEFUROXIME [Concomitant]
  54. BEXTRA [Concomitant]
  55. ATENOLOL [Concomitant]
  56. DETROL [Concomitant]
  57. TRAMADOL [Concomitant]
  58. DOXYCYCLINE [Concomitant]
  59. IPRATROPIUM [Concomitant]
  60. ALBUTEROL [Concomitant]
  61. DITROPAN [Concomitant]
  62. CLARITIN [Concomitant]
  63. DIPENOXYLATE/ATROPINE [Concomitant]
  64. ULTRAM [Concomitant]
  65. CEPHALEXIN [Concomitant]
  66. VICODIN [Concomitant]
  67. ACETAMINOPHEN [Concomitant]
  68. ADVIL [Concomitant]
  69. OCCURITE [Concomitant]
  70. ACCYZYME [Concomitant]

REACTIONS (33)
  - ANAEMIA [None]
  - ANAL SPHINCTER ATONY [None]
  - ANGINA UNSTABLE [None]
  - ANXIETY [None]
  - APHASIA [None]
  - ARTHRALGIA [None]
  - BACK PAIN [None]
  - BRONCHITIS [None]
  - CARDIAC FAILURE CONGESTIVE [None]
  - CARDIAC NEOPLASM UNSPECIFIED [None]
  - CHRONIC OBSTRUCTIVE PULMONARY DISEASE [None]
  - CONDITION AGGRAVATED [None]
  - CONFUSIONAL STATE [None]
  - DIABETES MELLITUS [None]
  - DIARRHOEA [None]
  - ECONOMIC PROBLEM [None]
  - EMOTIONAL DISORDER [None]
  - FALL [None]
  - GASTROINTESTINAL DISORDER [None]
  - HAEMORRHOIDS [None]
  - HALLUCINATION [None]
  - HEART RATE DECREASED [None]
  - ILL-DEFINED DISORDER [None]
  - INJURY [None]
  - LIGAMENT RUPTURE [None]
  - LIPOMATOSIS [None]
  - NAUSEA [None]
  - PAIN [None]
  - POLYP [None]
  - RECTAL HAEMORRHAGE [None]
  - SURGERY [None]
  - THERAPEUTIC AGENT TOXICITY [None]
  - TRANSIENT ISCHAEMIC ATTACK [None]
